FAERS Safety Report 7398204 (Version 6)
Quarter: 2016Q2

REPORT INFORMATION
  Report Type: Spontaneous
  Country: AT (occurrence: AT)
  Receive Date: 20100525
  Receipt Date: 20160505
  Transmission Date: 20160815
  Serious: Yes (Death)
  Sender: FDA-Public Use
  Company Number: AT-PURDUE-DEU-2010-0006250

PATIENT
  Age: 21 Year
  Sex: Male
  Weight: 70 kg

DRUGS (9)
  1. SUBSTITOL RETARD 200 MG-KAPSELN [Suspect]
     Active Substance: MORPHINE SULFATE
     Indication: DRUG ABUSE
  2. BENZODIAZEPINES [Concomitant]
     Active Substance: BENZODIAZEPINE
  3. SUBSTITOL RETARD 200 MG-KAPSELN [Suspect]
     Active Substance: MORPHINE SULFATE
     Indication: DRUG WITHDRAWAL MAINTENANCE THERAPY
     Dosage: UNK, SEE TEXT
     Route: 065
     Dates: start: 20100430, end: 20100430
  4. SUBSTITOL RETARD 200 MG-KAPSELN [Suspect]
     Active Substance: MORPHINE SULFATE
     Indication: DRUG DEPENDENCE
     Dosage: 200 MG, BID
     Route: 065
     Dates: start: 20100428, end: 201004
  5. METRONIDAZOLE. [Concomitant]
     Active Substance: METRONIDAZOLE
  6. CLOZAPINE. [Concomitant]
     Active Substance: CLOZAPINE
  7. SOMNUBENE [Concomitant]
     Active Substance: FLUNITRAZEPAM
     Indication: SEDATIVE THERAPY
  8. LEPONEX [Concomitant]
     Active Substance: CLOZAPINE
     Indication: SEDATIVE THERAPY
     Dosage: UNK
     Route: 065
     Dates: start: 201004
  9. LIDOCAINE. [Concomitant]
     Active Substance: LIDOCAINE

REACTIONS (5)
  - Overdose [Fatal]
  - Cardio-respiratory arrest [Fatal]
  - Myocardial infarction [Fatal]
  - Circulatory collapse [Fatal]
  - Brain death [Fatal]

NARRATIVE: CASE EVENT DATE: 20100430
